FAERS Safety Report 19180482 (Version 1)
Quarter: 2021Q2

REPORT INFORMATION
  Report Type: Report from Study
  Country: CA (occurrence: CA)
  Receive Date: 20210426
  Receipt Date: 20210426
  Transmission Date: 20210717
  Serious: Yes (Other)
  Sender: FDA-Public Use
  Company Number: CA-PFIZER INC-2021412054

PATIENT
  Age: 16 Year
  Sex: Female
  Weight: 49 kg

DRUGS (5)
  1. FLUVOXAMINE [Concomitant]
     Active Substance: FLUVOXAMINE
  2. NAPROXEN. [Concomitant]
     Active Substance: NAPROXEN
  3. TRAZODONE [Concomitant]
     Active Substance: TRAZODONE HYDROCHLORIDE
  4. RITUXIMAB. [Suspect]
     Active Substance: RITUXIMAB
     Indication: ENCEPHALITIS AUTOIMMUNE
     Dosage: UNK
     Route: 042
  5. RITUXIMAB. [Suspect]
     Active Substance: RITUXIMAB
     Indication: ENCEPHALITIS AUTOIMMUNE
     Dosage: 500 MG, WEEKLY
     Route: 042

REACTIONS (8)
  - Off label use [Unknown]
  - Acne [Unknown]
  - Decreased appetite [Unknown]
  - Weight decreased [Unknown]
  - Fatigue [Unknown]
  - Intentional product use issue [Unknown]
  - Noninfective encephalitis [Unknown]
  - Obsessive-compulsive disorder [Unknown]
